FAERS Safety Report 9210416 (Version 3)
Quarter: 2013Q2

REPORT INFORMATION
  Report Type: Spontaneous
  Country: US (occurrence: US)
  Receive Date: 20130404
  Receipt Date: 20130503
  Transmission Date: 20140414
  Serious: No
  Sender: FDA-Public Use
  Company Number: US-UCBSA-067284

PATIENT
  Age: 56 Year
  Sex: Female
  Weight: 63.5 kg

DRUGS (11)
  1. CIMZIA [Suspect]
     Indication: RHEUMATOID ARTHRITIS
     Route: 058
     Dates: start: 20120725, end: 20120919
  2. METHOCARBIMOL [Concomitant]
     Indication: MUSCLE SPASMS
     Route: 048
  3. METHOCARBIMOL [Concomitant]
     Indication: MUSCLE SPASMS
     Route: 048
     Dates: start: 20120914
  4. FOSAMAX [Concomitant]
     Indication: OSTEOPENIA
     Dosage: 1 TAB EVERY OTHER WEEK, STOPPED 2 WEEKS AGO (SOCIAL CIRCUMSTANCES), HAD BEEN TAKING FOR MANY YEARS
     Route: 048
  5. PREDNISONE [Concomitant]
  6. METHOTREXATE [Concomitant]
  7. ENBREL [Concomitant]
  8. HUMIRA [Concomitant]
  9. SULFASALAZINE [Concomitant]
  10. SIMPONI [Concomitant]
  11. PLAQUENIL [Concomitant]

REACTIONS (23)
  - Syncope [Recovered/Resolved]
  - Myoclonus [Recovered/Resolved]
  - Viral infection [Recovered/Resolved]
  - Tremor [Not Recovered/Not Resolved]
  - Joint swelling [Not Recovered/Not Resolved]
  - Dizziness [Not Recovered/Not Resolved]
  - Headache [Recovered/Resolved]
  - Abdominal pain upper [Recovered/Resolved]
  - Injection site discolouration [Not Recovered/Not Resolved]
  - Erythema [Recovered/Resolved]
  - Burning sensation [Recovered/Resolved]
  - Local swelling [Not Recovered/Not Resolved]
  - Muscular weakness [Not Recovered/Not Resolved]
  - Hypoaesthesia [Not Recovered/Not Resolved]
  - Injection site swelling [Unknown]
  - Confusional state [Unknown]
  - Injection site pallor [Not Recovered/Not Resolved]
  - Bone pain [Unknown]
  - Arthralgia [Unknown]
  - Blood urea increased [Unknown]
  - Creatinine renal clearance decreased [Unknown]
  - Protein urine [Unknown]
  - Anxiety [Unknown]
